FAERS Safety Report 4802124-3 (Version None)
Quarter: 2005Q4

REPORT INFORMATION
  Report Type: 
  Country: None (occurrence: None)
  Receive Date: 20051011
  Receipt Date: 20050929
  Transmission Date: 20060501
  Serious: No
  Sender: FDA-Public Use
  Company Number: 32055

PATIENT
  Age: 80 Year
  Sex: Male

DRUGS (2)
  1. ECONOPRED PLUS [Suspect]
     Indication: PROPHYLAXIS
     Dates: start: 20050718, end: 20050728
  2. VIGAMOX [Concomitant]

REACTIONS (1)
  - ENDOPHTHALMITIS [None]
